FAERS Safety Report 7897987-1 (Version None)
Quarter: 2011Q4

REPORT INFORMATION
  Report Type: 
  Country: None (occurrence: None)
  Receive Date: 20111107
  Receipt Date: 20111107
  Transmission Date: 20120403
  Serious: No
  Sender: FDA-Public Use
  Company Number: None

PATIENT

DRUGS (2)
  1. HEPARIN [Concomitant]
  2. HEPARIN [Suspect]

REACTIONS (3)
  - PRODUCT LABEL CONFUSION [None]
  - MEDICATION ERROR [None]
  - INTERCEPTED DRUG DISPENSING ERROR [None]
